FAERS Safety Report 11190358 (Version 4)
Quarter: 2016Q3

REPORT INFORMATION
  Report Type: Report from Study
  Country: BR (occurrence: BR)
  Receive Date: 20150615
  Receipt Date: 20160726
  Transmission Date: 20161109
  Serious: Yes (Hospitalization, Other)
  Sender: FDA-Public Use
  Company Number: BR-ABBVIE-15K-020-1381642-00

PATIENT
  Age: 50 Year
  Sex: Male
  Weight: 75 kg

DRUGS (4)
  1. CELEBRA [Concomitant]
     Active Substance: CELECOXIB
     Indication: ARTHRITIS
     Route: 048
     Dates: start: 20150902
  2. NASONEX [Concomitant]
     Active Substance: MOMETASONE FUROATE
     Indication: SECRETION DISCHARGE
     Route: 045
     Dates: start: 20150827
  3. HUMIRA [Suspect]
     Active Substance: ADALIMUMAB
     Indication: PSORIATIC ARTHROPATHY
     Route: 058
     Dates: start: 20130101, end: 201502
  4. SALINE [Concomitant]
     Active Substance: SODIUM CHLORIDE
     Indication: SECRETION DISCHARGE
     Route: 045
     Dates: start: 20150827

REACTIONS (16)
  - Seizure [Recovered/Resolved]
  - Granuloma [Unknown]
  - Tuberculosis [Recovering/Resolving]
  - Blood potassium decreased [Unknown]
  - Immunodeficiency [Recovering/Resolving]
  - Seizure [Recovering/Resolving]
  - Weight decreased [Recovering/Resolving]
  - Adenoiditis [Unknown]
  - Oropharyngeal pain [Recovered/Resolved]
  - Pyrexia [Recovered/Resolved]
  - Tuberculosis of central nervous system [Recovering/Resolving]
  - Hypersensitivity [Unknown]
  - Gastrooesophageal reflux disease [Unknown]
  - Granuloma [Recovering/Resolving]
  - Hypophagia [Recovering/Resolving]
  - Pain [Unknown]

NARRATIVE: CASE EVENT DATE: 20150218
